FAERS Safety Report 20075476 (Version 3)
Quarter: 2022Q1

REPORT INFORMATION
  Report Type: Spontaneous
  Country: ES (occurrence: ES)
  Receive Date: 20211116
  Receipt Date: 20220111
  Transmission Date: 20220423
  Serious: Yes (Hospitalization, Other)
  Sender: FDA-Public Use
  Company Number: ES-009507513-2108ESP003805

PATIENT
  Age: 62 Year
  Sex: Male

DRUGS (3)
  1. PANTOPRAZOLE [Suspect]
     Active Substance: PANTOPRAZOLE
     Indication: Product used for unknown indication
     Dosage: UNK
  2. MEROPENEM [Suspect]
     Active Substance: MEROPENEM
     Indication: Pneumonia
     Dosage: UNK
  3. DAPTOMYCIN [Suspect]
     Active Substance: DAPTOMYCIN
     Indication: Pneumonia
     Dosage: UNK

REACTIONS (2)
  - Tubulointerstitial nephritis [Recovered/Resolved]
  - Product use in unapproved indication [Unknown]
